FAERS Safety Report 5236458-8 (Version None)
Quarter: 2007Q1

REPORT INFORMATION
  Report Type: 
  Country: None (occurrence: None)
  Receive Date: 20070208
  Receipt Date: 20070129
  Transmission Date: 20070707
  Serious: Yes (Life-Threatening, Hospitalization, Other)
  Sender: FDA-Public Use
  Company Number: 2007-00204

PATIENT
  Age: 73 Year
  Sex: Male
  Weight: 88 kg

DRUGS (8)
  1. VELCADE [Suspect]
     Indication: DRUG USE FOR UNKNOWN INDICATION
     Dosage: 1.00 MG/M2, UNK, IV BOLUS
     Route: 040
     Dates: start: 20061124
  2. ALLOPURINOL [Concomitant]
  3. AMITRIPTYLINE HCL [Concomitant]
  4. DEXAMETHASONE [Concomitant]
  5. LACTULOSE [Concomitant]
  6. OMEPRAZOLE [Concomitant]
  7. OXYCONTIN [Concomitant]
  8. SENNA (SENNA) [Concomitant]

REACTIONS (2)
  - DEEP VEIN THROMBOSIS [None]
  - PULMONARY EMBOLISM [None]
